FAERS Safety Report 20160830 (Version 2)
Quarter: 2022Q1

REPORT INFORMATION
  Report Type: Spontaneous
  Country: US (occurrence: None)
  Receive Date: 20211208
  Receipt Date: 20220113
  Transmission Date: 20220424
  Serious: No
  Sender: FDA-Public Use
  Company Number: 2021A824516

PATIENT
  Age: 70 Year
  Sex: Male
  Weight: 101.2 kg

DRUGS (1)
  1. BYDUREON BCISE [Suspect]
     Active Substance: EXENATIDE
     Indication: Diabetes mellitus
     Dosage: 2MG/ML ONCE A WEEK
     Route: 058

REACTIONS (3)
  - Memory impairment [Unknown]
  - Injection site pain [Unknown]
  - Drug delivery system malfunction [Unknown]
